FAERS Safety Report 8552349-9 (Version None)
Quarter: 2012Q3

REPORT INFORMATION
  Report Type: 
  Country: None (occurrence: None)
  Receive Date: 20120731
  Receipt Date: 20120719
  Transmission Date: 20120928
  Serious: Yes (Hospitalization)
  Sender: FDA-Public Use
  Company Number: US-BAYER-2012-033100

PATIENT
  Age: 35 Year
  Sex: Female
  Weight: 81.633 kg

DRUGS (2)
  1. WELCHOL [Concomitant]
     Indication: BLOOD CHOLESTEROL DECREASED
     Dosage: 625 MG, TID
     Route: 048
  2. YASMIN [Suspect]
     Indication: CONTRACEPTION
     Dosage: UNK
     Dates: start: 20020301, end: 20040201

REACTIONS (5)
  - STRESS [None]
  - INJURY [None]
  - EMOTIONAL DISTRESS [None]
  - TRANSIENT ISCHAEMIC ATTACK [None]
  - PAIN [None]
